FAERS Safety Report 15707419 (Version 2)
Quarter: 2019Q2

REPORT INFORMATION
  Report Type: Spontaneous
  Country: IN (occurrence: IN)
  Receive Date: 20181211
  Receipt Date: 20190518
  Transmission Date: 20190711
  Serious: Yes (Life-Threatening)
  Sender: FDA-Public Use
  Company Number: IN-SUN PHARMACEUTICAL INDUSTRIES LTD-2018R1-193180

PATIENT
  Sex: Male

DRUGS (6)
  1. IPRATROPIUM [Suspect]
     Active Substance: IPRATROPIUM
     Indication: LUNG HYPERINFLATION
     Dosage: 250 MICROGRAM
  2. KETAMINE [Suspect]
     Active Substance: KETAMINE
     Indication: LUNG HYPERINFLATION
     Dosage: 1 MG/KG/H
     Route: 042
  3. MAGNESIUM [Suspect]
     Active Substance: MAGNESIUM
     Indication: LUNG HYPERINFLATION
     Dosage: 50 MG/KG
     Route: 042
  4. AMINOPHYLLINE. [Suspect]
     Active Substance: AMINOPHYLLINE
     Indication: LUNG HYPERINFLATION
     Dosage: 0.9 MG/KG/H
     Route: 042
  5. METHYLPREDNISOLONE. [Suspect]
     Active Substance: METHYLPREDNISOLONE
     Indication: LUNG HYPERINFLATION
     Dosage: 2 MG/KG
     Route: 042
  6. SALBUTAMOL [Suspect]
     Active Substance: ALBUTEROL
     Indication: LUNG DISORDER
     Dosage: 2.5 MILLIGRAM

REACTIONS (1)
  - Drug ineffective [Unknown]
